FAERS Safety Report 10513204 (Version 21)
Quarter: 2015Q3

REPORT INFORMATION
  Report Type: Report from Study
  Country: CA (occurrence: CA)
  Receive Date: 20141013
  Receipt Date: 20150716
  Transmission Date: 20151125
  Serious: Yes (Hospitalization)
  Sender: FDA-Public Use
  Company Number: CA-JNJFOC-20140816188

PATIENT
  Age: 94 Year
  Sex: Male

DRUGS (5)
  1. ZYTIGA [Suspect]
     Active Substance: ABIRATERONE ACETATE
     Indication: PROSTATE CANCER METASTATIC
     Route: 048
     Dates: start: 20140930
  2. ZYTIGA [Suspect]
     Active Substance: ABIRATERONE ACETATE
     Indication: PROSTATE CANCER METASTATIC
     Dosage: 4 PILLS AT ONCE
     Route: 048
     Dates: end: 20140927
  3. PREDNISONE. [Concomitant]
     Active Substance: PREDNISONE
     Indication: PROPHYLAXIS
     Route: 048
  4. ZYTIGA [Suspect]
     Active Substance: ABIRATERONE ACETATE
     Indication: PROSTATE CANCER METASTATIC
     Route: 048
     Dates: start: 20140824
  5. PREDNISONE. [Concomitant]
     Active Substance: PREDNISONE
     Indication: PROSTATE CANCER METASTATIC
     Route: 048

REACTIONS (26)
  - Fatigue [Unknown]
  - Blood testosterone decreased [Not Recovered/Not Resolved]
  - Haematocrit [Recovering/Resolving]
  - Blood luteinising hormone decreased [Not Recovered/Not Resolved]
  - Mean cell haemoglobin increased [Recovering/Resolving]
  - Laboratory test abnormal [Not Recovered/Not Resolved]
  - Prostatic specific antigen increased [Not Recovered/Not Resolved]
  - Peripheral swelling [Recovered/Resolved]
  - Myelocyte count increased [Unknown]
  - Red blood cell count decreased [Recovering/Resolving]
  - White blood cell count increased [Not Recovered/Not Resolved]
  - Blood pressure increased [Not Recovered/Not Resolved]
  - Gingival pain [Not Recovered/Not Resolved]
  - Glomerular filtration rate decreased [Not Recovered/Not Resolved]
  - Asthenia [Unknown]
  - Blood sodium decreased [Not Recovered/Not Resolved]
  - Vomiting [Unknown]
  - Haemoglobin decreased [Recovering/Resolving]
  - Pyrexia [Unknown]
  - Lymphocyte count decreased [Not Recovered/Not Resolved]
  - Blood testosterone decreased [Not Recovered/Not Resolved]
  - Blood pressure abnormal [Not Recovered/Not Resolved]
  - Blood creatinine increased [Unknown]
  - Mean cell volume increased [Recovering/Resolving]
  - Neutrophil count increased [Recovering/Resolving]
  - Blood pressure decreased [Not Recovered/Not Resolved]

NARRATIVE: CASE EVENT DATE: 201405
